FAERS Safety Report 4687032-3 (Version None)
Quarter: 2005Q2

REPORT INFORMATION
  Report Type: 
  Country: None (occurrence: None)
  Receive Date: 20050607
  Receipt Date: 20050520
  Transmission Date: 20051028
  Serious: Yes (Hospitalization)
  Sender: FDA-Public Use
  Company Number: WAES 0505MEX00008

PATIENT
  Age: 77 Year
  Sex: Male

DRUGS (3)
  1. VYTORIN [Suspect]
     Indication: HYPERCHOLESTEROLAEMIA
     Dosage: 10-10 ,PO
     Route: 048
     Dates: start: 20050210, end: 20050315
  2. CAPTOPRIL [Concomitant]
  3. LISINOPRIL [Concomitant]

REACTIONS (4)
  - ASTHENIA [None]
  - GASTRIC ULCER HAEMORRHAGE [None]
  - HAEMOGLOBIN DECREASED [None]
  - PALLOR [None]
